FAERS Safety Report 24652735 (Version 1)
Quarter: 2024Q4

REPORT INFORMATION
  Report Type: Other
  Country: US (occurrence: US)
  Receive Date: 20241122
  Receipt Date: 20241122
  Transmission Date: 20250115
  Serious: No
  Sender: CHEMI SPA
  Company Number: US-CHEMI SPA-2165675

PATIENT
  Age: 48 Year

DRUGS (1)
  1. TEMOZOLOMIDE [Suspect]
     Active Substance: TEMOZOLOMIDE
     Indication: Oligodendroglioma

REACTIONS (3)
  - Rash [Unknown]
  - Off label use [Unknown]
  - Fixed eruption [Unknown]
